FAERS Safety Report 9284319 (Version 1)
Quarter: 2013Q2

REPORT INFORMATION
  Report Type: Spontaneous
  Country: JP (occurrence: JP)
  Receive Date: 20130510
  Receipt Date: 20130510
  Transmission Date: 20140414
  Serious: Yes (Other)
  Sender: FDA-Public Use
  Company Number: JP-ROXANE LABORATORIES, INC.-2013-RO-00698RO

PATIENT
  Age: 76 Year
  Sex: Female
  Weight: 66 kg

DRUGS (4)
  1. FUROSEMIDE [Suspect]
     Dosage: 40 MG
  2. SPIRONOLACTONE [Suspect]
     Dosage: 25 MG
  3. OLMESARTAN [Suspect]
     Dosage: 20 MG
  4. ALFACALCIDOL [Suspect]
     Dosage: 1 MCG

REACTIONS (6)
  - Azotaemia [Unknown]
  - Hypercalcaemia [Unknown]
  - Urinary tract infection [Recovered/Resolved]
  - Convulsion [Recovered/Resolved]
  - Tetany [Recovered/Resolved]
  - Hypocalcaemia [Unknown]
